FAERS Safety Report 9682434 (Version 1)
Quarter: 2013Q4

REPORT INFORMATION
  Report Type: Report from Study
  Country: US (occurrence: US)
  Receive Date: 20131112
  Receipt Date: 20131112
  Transmission Date: 20140711
  Serious: Yes (Other)
  Sender: FDA-Public Use
  Company Number: US-ROCHE-1298702

PATIENT
  Sex: Female

DRUGS (10)
  1. LUCENTIS [Suspect]
     Indication: DIABETIC RETINAL OEDEMA
     Dosage: RIGHT EYE
     Route: 050
     Dates: start: 20131014
  2. AVASTIN [Suspect]
     Indication: DIABETIC RETINAL OEDEMA
     Dosage: INJECTION OD
     Route: 065
     Dates: start: 20120816
  3. OFLOXACIN [Concomitant]
     Dosage: 1 GTT DAILY
     Route: 065
  4. PREDNISOLONE ACETATE [Concomitant]
     Dosage: 1 GTT INTO RIGHT EYE 4 X DAILY AFTER SURGERY
     Route: 065
  5. HYDROCODONE/ACETAMINOPHEN [Concomitant]
     Route: 048
  6. IBUPROFEN [Concomitant]
     Dosage: PRN
     Route: 048
  7. INSULIN PUMP [Concomitant]
     Route: 065
  8. METFORMIN [Concomitant]
     Route: 048
  9. NORTRIPTYLINE [Concomitant]
     Dosage: AT BEDTIME
     Route: 048
  10. OMEGA 3 FATTY ACIDS [Concomitant]
     Route: 048

REACTIONS (9)
  - Punctate keratitis [Unknown]
  - Dry eye [Unknown]
  - Visual acuity reduced [Unknown]
  - Pinguecula [Unknown]
  - Pain [Unknown]
  - Melanosis [Unknown]
  - Lenticular opacities [Unknown]
  - Cataract nuclear [Unknown]
  - Cataract subcapsular [Unknown]
